FAERS Safety Report 18290589 (Version 1)
Quarter: 2020Q3

REPORT INFORMATION
  Report Type: Spontaneous
  Country: CN (occurrence: CN)
  Receive Date: 20200921
  Receipt Date: 20200921
  Transmission Date: 20201103
  Serious: Yes (Hospitalization)
  Sender: FDA-Public Use
  Company Number: CN-ELI_LILLY_AND_COMPANY-CN202009003836

PATIENT
  Age: 63 Year
  Sex: Male

DRUGS (2)
  1. PEMETREXED. [Suspect]
     Active Substance: PEMETREXED
     Indication: LUNG NEOPLASM MALIGNANT
     Dosage: 0.5 G, SINGLE
     Route: 041
     Dates: start: 20200821, end: 20200821
  2. PEMETREXED. [Suspect]
     Active Substance: PEMETREXED
     Dosage: 0.2 G, SINGLE
     Route: 041
     Dates: start: 20200821, end: 20200821

REACTIONS (1)
  - Pigmentation disorder [Unknown]

NARRATIVE: CASE EVENT DATE: 20200826
